FAERS Safety Report 12084737 (Version 1)
Quarter: 2016Q1

REPORT INFORMATION
  Report Type: Spontaneous
  Country: US (occurrence: US)
  Receive Date: 20160217
  Receipt Date: 20160217
  Transmission Date: 20160526
  Serious: No
  Sender: FDA-Public Use
  Company Number: US-ELI_LILLY_AND_COMPANY-US201601008384

PATIENT
  Age: 42 Year
  Sex: Male

DRUGS (5)
  1. EFFIENT [Suspect]
     Active Substance: PRASUGREL HYDROCHLORIDE
     Indication: PERCUTANEOUS CORONARY INTERVENTION
  2. ASPIRIN                            /00002701/ [Concomitant]
     Active Substance: ASPIRIN
     Indication: ACUTE CORONARY SYNDROME
     Dosage: UNK, UNKNOWN
     Route: 065
  3. EFFIENT [Suspect]
     Active Substance: PRASUGREL HYDROCHLORIDE
     Indication: STENT PLACEMENT
  4. ASPIRIN                            /00002701/ [Concomitant]
     Active Substance: ASPIRIN
     Indication: PERCUTANEOUS CORONARY INTERVENTION
  5. EFFIENT [Suspect]
     Active Substance: PRASUGREL HYDROCHLORIDE
     Indication: ACUTE CORONARY SYNDROME
     Dosage: 10 MG, QD
     Route: 048
     Dates: start: 2015

REACTIONS (2)
  - Cardiovascular disorder [Unknown]
  - Drug ineffective [Unknown]
